FAERS Safety Report 23362375 (Version 3)
Quarter: 2024Q1

REPORT INFORMATION
  Report Type: Spontaneous
  Country: IT (occurrence: IT)
  Receive Date: 20240103
  Receipt Date: 20240216
  Transmission Date: 20240410
  Serious: Yes (Hospitalization)
  Sender: FDA-Public Use
  Company Number: IT-002147023-NVSC2023IT277113

PATIENT
  Sex: Male
  Weight: 5.5 kg

DRUGS (2)
  1. ZOLGENSMA [Suspect]
     Active Substance: ONASEMNOGENE ABEPARVOVEC-XIOI
     Indication: Spinal muscular atrophy
     Dosage: UNK (30, 3 ML)
     Route: 042
     Dates: start: 20231201
  2. PREDNISOLONE [Concomitant]
     Active Substance: PREDNISOLONE
     Indication: Product used for unknown indication
     Dosage: 5 MG
     Route: 065
     Dates: start: 20221130, end: 20240103

REACTIONS (5)
  - COVID-19 [Unknown]
  - Pyrexia [Unknown]
  - Dysphagia [Unknown]
  - Dyspnoea [Unknown]
  - Hypophagia [Unknown]

NARRATIVE: CASE EVENT DATE: 20231201
